FAERS Safety Report 9072829 (Version 1)
Quarter: 2013Q1

REPORT INFORMATION
  Report Type: Spontaneous
  Country: GB (occurrence: GB)
  Receive Date: 20130207
  Receipt Date: 20130207
  Transmission Date: 20140127
  Serious: Yes (Hospitalization)
  Sender: FDA-Public Use
  Company Number: GB-TEVA-381649ISR

PATIENT
  Age: 55 Year
  Sex: Male

DRUGS (3)
  1. DOXYCYCLINE [Suspect]
     Indication: INFECTION
     Route: 048
     Dates: start: 201210, end: 20121103
  2. INFLUENZA VIRUS [Suspect]
     Indication: PROPHYLAXIS
     Route: 030
     Dates: start: 20121012, end: 20121012
  3. PENICILLIN [Concomitant]
     Indication: ASPLENIA
     Dosage: 500 MILLIGRAM DAILY; SEVERAL YEARS
     Route: 048

REACTIONS (6)
  - Abdominal pain [Not Recovered/Not Resolved]
  - Malaise [Not Recovered/Not Resolved]
  - Liver function test abnormal [Not Recovered/Not Resolved]
  - Coagulation time prolonged [Not Recovered/Not Resolved]
  - Amylase increased [Not Recovered/Not Resolved]
  - Activated partial thromboplastin time prolonged [Not Recovered/Not Resolved]
